FAERS Safety Report 22400780 (Version 1)
Quarter: 2023Q2

REPORT INFORMATION
  Report Type: Spontaneous
  Country: BR (occurrence: BR)
  Receive Date: 20230602
  Receipt Date: 20230602
  Transmission Date: 20230721
  Serious: Yes (Hospitalization)
  Sender: FDA-Public Use
  Company Number: BR-PFIZER INC-202300209557

PATIENT
  Age: 36 Year
  Sex: Female
  Weight: 50 kg

DRUGS (4)
  1. ADALIMUMAB [Suspect]
     Active Substance: ADALIMUMAB
     Dosage: 1 DF (1 AMPOULE EVERY 14 DAYS)(6 MONTHS AGO)
     Route: 058
     Dates: start: 2022
  2. INFLIXIMAB [Concomitant]
     Active Substance: INFLIXIMAB
     Indication: Crohn^s disease
     Dosage: 240 MG, CYCLIC (240 MG EVERY 2 MONTHS)
     Route: 042
     Dates: start: 20220810
  3. PREDNISONE [Concomitant]
     Active Substance: PREDNISONE
     Indication: Rheumatoid arthritis
     Dosage: 1 DF, 1X/DAY (1 PILL A DAY)(START DATE: 5 YEARS AGO)
     Route: 048
  4. METAMIZOLE SODIUM [Concomitant]
     Active Substance: METAMIZOLE SODIUM
     Indication: Rheumatoid arthritis
     Dosage: 2 DF, 1X/DAY (2 PILLS A DAY)(START DATE: 7 MONTHS AGO)
     Route: 048

REACTIONS (1)
  - Intra-abdominal fluid collection [Unknown]

NARRATIVE: CASE EVENT DATE: 20220101
